FAERS Safety Report 16123296 (Version 2)
Quarter: 2019Q2

REPORT INFORMATION
  Report Type: Report from Study
  Country: MX (occurrence: MX)
  Receive Date: 20190327
  Receipt Date: 20190412
  Transmission Date: 20190711
  Serious: Yes (Death)
  Sender: FDA-Public Use
  Company Number: PHHY2019MX045020

PATIENT
  Age: 70 Year
  Sex: Female

DRUGS (2)
  1. ENTRESTO [Suspect]
     Active Substance: SACUBITRIL\VALSARTAN
     Dosage: 0.5 DF, BID (100 MG, 1/2 BID HALF IN THE MORNING AND HALF IN THE NIGHT)
     Route: 048
     Dates: start: 20190110
  2. ENTRESTO [Suspect]
     Active Substance: SACUBITRIL\VALSARTAN
     Indication: ISCHAEMIC CARDIOMYOPATHY
     Dosage: 1 DF, QD
     Route: 048
     Dates: start: 20181201, end: 20190110

REACTIONS (4)
  - Wrong technique in product usage process [Recovering/Resolving]
  - Product use in unapproved indication [Recovering/Resolving]
  - Death [Fatal]
  - Product prescribing error [Recovering/Resolving]

NARRATIVE: CASE EVENT DATE: 20181201
